FAERS Safety Report 12644345 (Version 2)
Quarter: 2016Q3

REPORT INFORMATION
  Report Type: Spontaneous
  Country: DE (occurrence: DE)
  Receive Date: 20160811
  Receipt Date: 20160826
  Transmission Date: 20161109
  Serious: Yes (Death, Life-Threatening, Other)
  Sender: FDA-Public Use
  Company Number: DE-ALKEM LABORATORIES LIMITED-DE-ALKEM-2016-00113

PATIENT
  Age: 76 Year
  Sex: Female

DRUGS (18)
  1. OLANZAPINE. [Suspect]
     Active Substance: OLANZAPINE
     Indication: MERYCISM
     Dosage: 2.5 MG, SECOND DAY OF TREATMENT
  2. PANTOPRAZOLE [Concomitant]
     Active Substance: PANTOPRAZOLE SODIUM
     Indication: PRODUCT USED FOR UNKNOWN INDICATION
     Dosage: 40 MG, QD
  3. VENLAFAXINE [Suspect]
     Active Substance: VENLAFAXINE HYDROCHLORIDE
     Dosage: 75 MG, UNK
  4. LORAZEPAM. [Suspect]
     Active Substance: LORAZEPAM
     Dosage: 0.5 MG, UNK
  5. OLANZAPINE. [Suspect]
     Active Substance: OLANZAPINE
     Indication: INSOMNIA
     Dosage: 5 MG, AT NIGHT
  6. VENLAFAXINE [Suspect]
     Active Substance: VENLAFAXINE HYDROCHLORIDE
     Dosage: 112.5 MG, UNK
  7. LORAZEPAM. [Suspect]
     Active Substance: LORAZEPAM
     Dosage: 1 MG, UNK
  8. PREDNISOLONE. [Concomitant]
     Active Substance: PREDNISOLONE
     Indication: PRODUCT USED FOR UNKNOWN INDICATION
     Dosage: 5 MG, QD
  9. CALCIUM [Concomitant]
     Active Substance: CALCIUM
     Indication: PRODUCT USED FOR UNKNOWN INDICATION
     Dosage: 500 MG, QD
  10. METHOTREXATE. [Concomitant]
     Active Substance: METHOTREXATE
     Indication: RHEUMATOID ARTHRITIS
     Dosage: 15 MG, UNK
  11. LORAZEPAM. [Suspect]
     Active Substance: LORAZEPAM
     Indication: DEPRESSION
     Dosage: 0.5 MG, BID
  12. VENLAFAXINE [Suspect]
     Active Substance: VENLAFAXINE HYDROCHLORIDE
     Indication: ANTIDEPRESSANT THERAPY
     Dosage: 37.5 MG, UNK
  13. PRADAXA [Suspect]
     Active Substance: DABIGATRAN ETEXILATE MESYLATE
     Indication: DEEP VEIN THROMBOSIS
     Dosage: UNKNOWN
     Route: 048
  14. LORAZEPAM. [Suspect]
     Active Substance: LORAZEPAM
     Dosage: 0.25 MG, UNK
  15. DABIGATRAN [Suspect]
     Active Substance: DABIGATRAN
     Indication: ANTICOAGULANT THERAPY
     Dosage: UNKNOWN
     Route: 048
  16. LORAZEPAM. [Suspect]
     Active Substance: LORAZEPAM
     Dosage: 0.75 MG, UNK
  17. FESOTERODINE [Concomitant]
     Active Substance: FESOTERODINE
     Indication: PRODUCT USED FOR UNKNOWN INDICATION
     Dosage: 8 MG, QD
  18. COLECALCIFEROL [Concomitant]
     Active Substance: CHOLECALCIFEROL
     Indication: PRODUCT USED FOR UNKNOWN INDICATION
     Dosage: ONCE/WEEK

REACTIONS (7)
  - Therapy non-responder [None]
  - Tibia fracture [None]
  - Ulna fracture [None]
  - Pelvic haematoma [None]
  - Femoral neck fracture [None]
  - Seizure [Fatal]
  - Patella fracture [None]
